FAERS Safety Report 5215352-2 (Version None)
Quarter: 2006Q4

REPORT INFORMATION
  Report Type: 
  Country: None (occurrence: None)
  Receive Date: 20061122
  Receipt Date: 20060816
  Transmission Date: 20070319
  Serious: Yes (Other)
  Sender: FDA-Public Use
  Company Number: 2006076787

PATIENT
  Age: 49 Year
  Sex: Female
  Weight: 81.6475 kg

DRUGS (6)
  1. LIPITOR [Suspect]
     Indication: BLOOD CHOLESTEROL INCREASED
     Dosage: 10 MG (10 MG, 1 IN 1 D), ORAL
     Route: 048
     Dates: start: 20040801
  2. PREMARIN [Concomitant]
  3. LEVOTHYROXINE SODIUM [Concomitant]
  4. VITAMIN C (VITAMIN C) [Concomitant]
  5. CALCIUM (CALCIUM) [Concomitant]
  6. MULTI-VITAMINS [Concomitant]

REACTIONS (3)
  - HYPERSENSITIVITY [None]
  - PRURITUS [None]
  - URTICARIA [None]
